FAERS Safety Report 9211089 (Version 1)
Quarter: 2013Q2

REPORT INFORMATION
  Report Type: Spontaneous
  Country: US (occurrence: US)
  Receive Date: 20130404
  Receipt Date: 20130404
  Transmission Date: 20140414
  Serious: Yes (Death)
  Sender: FDA-Public Use
  Company Number: US-WATSON-2013-05540

PATIENT
  Age: 39 Year
  Sex: Male

DRUGS (10)
  1. SULFAMETHOXAZOLE-TRIMETHOPRIM [Suspect]
     Indication: BURKHOLDERIA TEST POSITIVE
     Dosage: UNKNOWN
     Route: 065
  2. PIPERACILLIN-TAZOBACTAM (NO PREF. NAME) [Suspect]
     Indication: BURKHOLDERIA TEST POSITIVE
     Dosage: UNKNOWN
     Route: 065
  3. CEFTRIAXONE [Suspect]
     Indication: EVIDENCE BASED TREATMENT
     Dosage: UNKNOWN
     Route: 065
  4. MINOCYCLINE HCL (WATSON LABORATORIES) [Suspect]
     Indication: EVIDENCE BASED TREATMENT
     Dosage: UNKNOWN
     Route: 065
  5. VORICONAZOLE [Suspect]
     Indication: EVIDENCE BASED TREATMENT
     Dosage: UNKNOWN
     Route: 065
  6. PREDNISONE [Concomitant]
     Indication: PRODUCT USED FOR UNKNOWN INDICATION
     Dosage: 10 MG, DAILY
     Route: 065
  7. MYCOPHENOLATE MOFETIL [Concomitant]
     Indication: PRODUCT USED FOR UNKNOWN INDICATION
     Dosage: 500 MG, BID
     Route: 065
  8. TACROLIMUS [Concomitant]
     Indication: PRODUCT USED FOR UNKNOWN INDICATION
     Dosage: 2 MG, BID
     Route: 065
  9. ITRACONAZOLE EG [Concomitant]
     Indication: ANTIFUNGAL PROPHYLAXIS
     Dosage: UNKNOWN
     Route: 065
  10. VALGANCICLOVIR                     /01542202/ [Concomitant]
     Indication: ANTIVIRAL PROPHYLAXIS
     Dosage: UNKNOWN
     Route: 065

REACTIONS (9)
  - Pathogen resistance [Fatal]
  - Respiratory failure [Fatal]
  - Renal failure acute [Fatal]
  - Drug ineffective [Fatal]
  - Organising pneumonia [None]
  - Pulmonary haemorrhage [None]
  - Lung abscess [None]
  - Condition aggravated [None]
  - Bacterial test positive [None]
